FAERS Safety Report 8157965-4 (Version None)
Quarter: 2012Q1

REPORT INFORMATION
  Report Type: 
  Country: None (occurrence: None)
  Receive Date: 20120222
  Receipt Date: 20120214
  Transmission Date: 20120608
  Serious: Yes (Other)
  Sender: FDA-Public Use
  Company Number: PHHY2012BR012978

PATIENT
  Sex: Female

DRUGS (1)
  1. FORMOTEROL FUMARATE [Suspect]

REACTIONS (6)
  - CHEST DISCOMFORT [None]
  - RESPIRATORY DISTRESS [None]
  - COUGH [None]
  - DIZZINESS [None]
  - LABYRINTHITIS [None]
  - MALAISE [None]
